FAERS Safety Report 4510673-0 (Version None)
Quarter: 2004Q4

REPORT INFORMATION
  Report Type: 
  Country: None (occurrence: None)
  Receive Date: 20041123
  Receipt Date: 20041029
  Transmission Date: 20050328
  Serious: Yes (Death, Hospitalization)
  Sender: FDA-Public Use
  Company Number: 20041100480

PATIENT
  Age: 92 Year
  Sex: Male

DRUGS (14)
  1. FAMOTIDINE [Suspect]
     Dosage: 20 MG BID NG
  2. GLYBURIDE [Concomitant]
  3. LISINOPRIL [Concomitant]
  4. FUROSEMIDE [Concomitant]
  5. COLACE [Concomitant]
  6. ACETAMINOPHEN AND HYDROCODONE BITARTRATE [Concomitant]
  7. ZOLPIDEM [Concomitant]
  8. ASPIRIN [Concomitant]
  9. HEPARIN [Concomitant]
  10. METOPROLOL [Concomitant]
  11. FENTANYL [Concomitant]
  12. MIDAZOLAM HCL [Concomitant]
  13. VITAMIN K [Concomitant]
  14. INSULIN [Concomitant]

REACTIONS (10)
  - ACUTE MYOCARDIAL INFARCTION [None]
  - ACUTE RESPIRATORY FAILURE [None]
  - ENTEROCOCCAL SEPSIS [None]
  - LONG QT SYNDROME [None]
  - MULTI-ORGAN FAILURE [None]
  - PYREXIA [None]
  - RENAL FAILURE [None]
  - SEPSIS [None]
  - TORSADE DE POINTES [None]
  - URETHRAL ABSCESS [None]
